FAERS Safety Report 8273313-3 (Version None)
Quarter: 2012Q2

REPORT INFORMATION
  Report Type: 
  Country: None (occurrence: None)
  Receive Date: 20120411
  Receipt Date: 20120405
  Transmission Date: 20120825
  Serious: Yes (Other)
  Sender: FDA-Public Use
  Company Number: BR-PFIZER INC-2012074811

PATIENT
  Age: 78 Year
  Sex: Female

DRUGS (14)
  1. DIPROGENTA [Concomitant]
     Indication: PHOTOPHOBIA
  2. LYRICA [Suspect]
     Dosage: 2DF/DAY
     Route: 048
     Dates: start: 20111221
  3. LEXOTAN [Concomitant]
     Indication: ANXIETY
     Dosage: HALF TABLET OF 0.5 MG AT NIGHT
     Dates: start: 20020101
  4. LEXOTAN [Concomitant]
     Indication: INSOMNIA
  5. AMLODIPINE BESYLATE [Concomitant]
     Indication: BLOOD PRESSURE INCREASED
     Dosage: 1 TABLET DAILY
     Dates: start: 20020101
  6. CELEBREX [Interacting]
     Indication: PAIN
     Dosage: UNK
     Route: 048
     Dates: start: 20120101, end: 20120201
  7. BENERVA [Concomitant]
     Indication: NEUROPATHY PERIPHERAL
     Dosage: UNK
     Dates: start: 20111201
  8. DIPROGENTA [Concomitant]
     Indication: VITILIGO
     Dosage: UNK
  9. OPTIVE [Concomitant]
     Indication: DRY EYE
     Dosage: 1 GTT, 3X/DAY
     Route: 047
     Dates: start: 20090101
  10. LEVOTHYROXINE SODIUM [Concomitant]
     Indication: HYPERTHYROIDISM
     Dosage: 1 TABLET DAILY
     Dates: start: 19970101
  11. ASPIRIN [Concomitant]
     Indication: ANTIPLATELET THERAPY
     Dosage: 100 MG, 1X/DAY
     Dates: start: 20120101
  12. CALCIUM CARBONATE [Concomitant]
     Indication: OSTEOPOROSIS
     Dosage: 1 TABLET DAILY
     Dates: start: 19820101
  13. PROPYLENE GLYCOL [Concomitant]
     Indication: DRY EYE
     Dosage: 1 GTT, 3X/DAY
     Dates: start: 20090101
  14. ENALAPRIL [Concomitant]
     Indication: BLOOD PRESSURE INCREASED
     Dosage: 2 DF, 2X/DAY
     Dates: start: 20020101

REACTIONS (7)
  - MALAISE [None]
  - DIZZINESS [None]
  - DRUG INEFFECTIVE [None]
  - DRUG INTERACTION [None]
  - PRURITUS [None]
  - PAIN IN EXTREMITY [None]
  - BLOOD PRESSURE INCREASED [None]
